FAERS Safety Report 17920449 (Version 2)
Quarter: 2020Q3

REPORT INFORMATION
  Report Type: Report from Study
  Country: DE (occurrence: DE)
  Receive Date: 20200620
  Receipt Date: 20200721
  Transmission Date: 20201103
  Serious: Yes (Death, Life-Threatening, Hospitalization, Congenital Anomaly, Other)
  Sender: FDA-Public Use
  Company Number: PHHY2018DE017804

PATIENT
  Age: 67 Year
  Sex: Female
  Weight: 65 kg

DRUGS (50)
  1. RIXATHON [Suspect]
     Active Substance: RITUXIMAB
     Dosage: 600 MG, INFUSION TIME FROM 10:30 TO 11:30
     Route: 041
     Dates: start: 20180730
  2. CYCLOPHOSPHAMIDE. [Suspect]
     Active Substance: CYCLOPHOSPHAMIDE
     Dosage: 1180 MG, UNK
     Route: 041
     Dates: start: 20180528, end: 20180528
  3. CYCLOPHOSPHAMIDE. [Suspect]
     Active Substance: CYCLOPHOSPHAMIDE
     Dosage: 1180 MG, UNK
     Route: 041
     Dates: start: 20180709, end: 20180709
  4. PREDNISONE. [Suspect]
     Active Substance: PREDNISONE
     Dosage: 350 MG
     Route: 048
     Dates: start: 20180416, end: 20180421
  5. PREDNISONE. [Suspect]
     Active Substance: PREDNISONE
     Dosage: 500 MG
     Route: 048
     Dates: start: 20180709, end: 20180713
  6. RIXATHON [Suspect]
     Active Substance: RITUXIMAB
     Dosage: 600 MG, UNK
     Route: 041
     Dates: start: 20180528, end: 20180528
  7. VINCRISTINE [Suspect]
     Active Substance: VINCRISTINE
     Dosage: 2 MG, (INFUSION TIME 14:15)
     Route: 041
     Dates: start: 20180730, end: 20180730
  8. PREDNISONE. [Suspect]
     Active Substance: PREDNISONE
     Dosage: 500 MG
     Route: 048
     Dates: start: 20180618, end: 20180622
  9. MST [Concomitant]
     Indication: PROPHYLAXIS
     Dosage: 10 MG
     Route: 048
     Dates: start: 20180816, end: 20180816
  10. NOVALGIN [Concomitant]
     Indication: PROPHYLAXIS
     Dosage: UNK
     Route: 048
     Dates: start: 20180407, end: 20181110
  11. RAMIPRIL. [Concomitant]
     Active Substance: RAMIPRIL
     Indication: HYPERTONIA
     Dosage: 5 MG
     Route: 048
     Dates: start: 20181110
  12. MESNA. [Concomitant]
     Active Substance: MESNA
     Indication: PRODUCT USED FOR UNKNOWN INDICATION
     Dosage: 14.28 MG, QID
     Route: 048
     Dates: start: 20180417, end: 20180730
  13. CYCLOPHOSPHAMIDE. [Suspect]
     Active Substance: CYCLOPHOSPHAMIDE
     Dosage: 1180 MG, UNK
     Route: 041
     Dates: start: 20180618, end: 20180618
  14. GLUCOSE [Concomitant]
     Active Substance: DEXTROSE
     Indication: PRODUCT USED FOR UNKNOWN INDICATION
     Dosage: UNK
     Route: 042
     Dates: start: 20180417, end: 20180730
  15. RIXATHON [Suspect]
     Active Substance: RITUXIMAB
     Dosage: 600 MG, (INFUSION RATE 250 ML/MIN FROM 10:00 TO 12:40)
     Route: 041
     Dates: start: 20180507, end: 20180507
  16. CARBOPLATIN. [Suspect]
     Active Substance: CARBOPLATIN
     Indication: PRODUCT USED FOR UNKNOWN INDICATION
     Dosage: 430 MG, BID
     Route: 065
     Dates: start: 20180817
  17. VINCRISTINE [Suspect]
     Active Substance: VINCRISTINE
     Dosage: 2 MG
     Route: 041
     Dates: start: 20180507
  18. DOXORUBICIN [Suspect]
     Active Substance: DOXORUBICIN
     Dosage: 79 MG, UNK
     Route: 041
     Dates: start: 20180618, end: 20180618
  19. DOXORUBICIN [Suspect]
     Active Substance: DOXORUBICIN
     Dosage: 79 MG, UNK
     Route: 041
     Dates: start: 20180730, end: 20180730
  20. PREDNISONE. [Suspect]
     Active Substance: PREDNISONE
     Indication: DIFFUSE LARGE B-CELL LYMPHOMA
     Dosage: 400 MG
     Route: 048
     Dates: start: 20180411, end: 20180414
  21. GRANISETRON [Concomitant]
     Active Substance: GRANISETRON
     Indication: PRODUCT USED FOR UNKNOWN INDICATION
     Dosage: UNK
     Route: 042
     Dates: start: 20180417, end: 20180528
  22. STEROFUNDIN ISO [Concomitant]
     Indication: PRODUCT USED FOR UNKNOWN INDICATION
     Dosage: UNK
     Route: 042
     Dates: start: 20180417, end: 20180730
  23. METAMIZOLE SODIUM [Concomitant]
     Active Substance: METAMIZOLE SODIUM
     Indication: PROPHYLAXIS
     Dosage: 500 MG/ML, 3X40 DRIPS / DAY
     Route: 048
     Dates: start: 20180407, end: 20181110
  24. RIXATHON [Suspect]
     Active Substance: RITUXIMAB
     Dosage: 600 MG, UNK
     Route: 041
     Dates: start: 20180618, end: 20180618
  25. ETOPOSIDE. [Suspect]
     Active Substance: ETOPOSIDE
     Indication: PRODUCT USED FOR UNKNOWN INDICATION
     Dosage: 168 MG, TID
     Route: 065
     Dates: start: 20180817
  26. VINCRISTINE [Suspect]
     Active Substance: VINCRISTINE
     Indication: DIFFUSE LARGE B-CELL LYMPHOMA
     Dosage: UNK
     Route: 041
     Dates: start: 20180416, end: 20180416
  27. VINCRISTINE [Suspect]
     Active Substance: VINCRISTINE
     Dosage: 2 MG, (INFUSION TIME 12:50)
     Route: 041
     Dates: start: 20180618, end: 20180618
  28. DOXORUBICIN [Suspect]
     Active Substance: DOXORUBICIN
     Indication: DIFFUSE LARGE B-CELL LYMPHOMA
     Dosage: 79 MG
     Route: 041
     Dates: start: 20180417
  29. DOXORUBICIN [Suspect]
     Active Substance: DOXORUBICIN
     Dosage: 79 MG
     Route: 041
     Dates: start: 20180507, end: 20180507
  30. CYCLOPHOSPHAMIDE. [Suspect]
     Active Substance: CYCLOPHOSPHAMIDE
     Indication: DIFFUSE LARGE B-CELL LYMPHOMA
     Dosage: 1180 MG
     Route: 041
     Dates: start: 20180417
  31. PREDNISONE. [Suspect]
     Active Substance: PREDNISONE
     Dosage: 500 MG
     Route: 048
     Dates: start: 20180730, end: 20180830
  32. HCT [Concomitant]
     Active Substance: HYDROCHLOROTHIAZIDE
     Indication: PRODUCT USED FOR UNKNOWN INDICATION
     Dosage: 25 MG
     Route: 048
     Dates: start: 20181110
  33. FENISTIL [Concomitant]
     Active Substance: DIMETHINDENE
     Indication: PRODUCT USED FOR UNKNOWN INDICATION
     Dosage: UNK
     Route: 042
     Dates: start: 20180416, end: 20180730
  34. RIXATHON [Suspect]
     Active Substance: RITUXIMAB
     Indication: DIFFUSE LARGE B-CELL LYMPHOMA
     Dosage: 600 MG
     Route: 041
     Dates: start: 20180416
  35. RIXATHON [Suspect]
     Active Substance: RITUXIMAB
     Dosage: 630 MG, QD
     Route: 065
     Dates: start: 20180817
  36. VINCRISTINE [Suspect]
     Active Substance: VINCRISTINE
     Dosage: 2 MG, (INFUSION TIME 13:15)
     Route: 041
     Dates: start: 20180528, end: 20180528
  37. CYCLOPHOSPHAMIDE. [Suspect]
     Active Substance: CYCLOPHOSPHAMIDE
     Dosage: 1180 MG, UNK
     Route: 041
     Dates: start: 20180730, end: 20180730
  38. IFOSFAMIDA [Suspect]
     Active Substance: IFOSFAMIDE
     Indication: PRODUCT USED FOR UNKNOWN INDICATION
     Dosage: 8400 MG, TID
     Route: 065
     Dates: start: 20180817
  39. ALLOPURINOL. [Concomitant]
     Active Substance: ALLOPURINOL
     Indication: PRODUCT USED FOR UNKNOWN INDICATION
     Dosage: UNK
     Route: 048
     Dates: start: 20180416, end: 20180730
  40. RIXATHON [Suspect]
     Active Substance: RITUXIMAB
     Dosage: 600 MG, UNK
     Route: 041
     Dates: start: 20180709, end: 20180709
  41. PANTOZOL [Concomitant]
     Active Substance: PANTOPRAZOLE SODIUM
     Indication: PROPHYLAXIS
     Dosage: 40 MG
     Route: 048
     Dates: start: 20180409, end: 20180421
  42. PARACETAMOL [Concomitant]
     Active Substance: ACETAMINOPHEN
     Indication: PRODUCT USED FOR UNKNOWN INDICATION
     Dosage: UNK
     Route: 048
     Dates: start: 20180416, end: 20180730
  43. VINCRISTINE [Suspect]
     Active Substance: VINCRISTINE
     Dosage: 2 MG, UNK
     Route: 041
     Dates: start: 20180709, end: 20180709
  44. DOXORUBICIN [Suspect]
     Active Substance: DOXORUBICIN
     Dosage: 79 MG, UNK
     Route: 041
     Dates: start: 20180528, end: 20180528
  45. DOXORUBICIN [Suspect]
     Active Substance: DOXORUBICIN
     Dosage: 79 MG, UNK
     Route: 041
     Dates: start: 20180709, end: 20180709
  46. CYCLOPHOSPHAMIDE. [Suspect]
     Active Substance: CYCLOPHOSPHAMIDE
     Dosage: 1180 MG, (INFUSION RATE 500 ML/MIN FROM 13:10 TO 13:40)
     Route: 041
     Dates: start: 20180507, end: 20180507
  47. PREDNISONE. [Suspect]
     Active Substance: PREDNISONE
     Dosage: 500 MG
     Route: 048
     Dates: start: 20180507
  48. PREDNISONE. [Suspect]
     Active Substance: PREDNISONE
     Dosage: 500 MG
     Route: 048
     Dates: start: 20180528, end: 20180601
  49. COTRIM FORTE [Concomitant]
     Active Substance: SULFAMETHOXAZOLE\TRIMETHOPRIM
     Indication: PROPHYLAXIS
     Dosage: 960 MG
     Route: 048
     Dates: start: 20180427, end: 20181110
  50. AMOXICILLIN+CLAVULANIC ACID [Concomitant]
     Active Substance: AMOXICILLIN\CLAVULANIC ACID
     Indication: PROPHYLAXIS
     Dosage: 875/125 MG
     Route: 042
     Dates: start: 20180327, end: 20180404

REACTIONS (27)
  - Non-Hodgkin^s lymphoma [Recovered/Resolved]
  - Insomnia [Unknown]
  - Tension [Unknown]
  - Fatigue [Unknown]
  - Depression [Unknown]
  - Diffuse large B-cell lymphoma [Not Recovered/Not Resolved]
  - Leukopenia [Recovered/Resolved]
  - General physical health deterioration [Unknown]
  - Mobility decreased [Unknown]
  - Disturbance in attention [Unknown]
  - Jugular vein thrombosis [Not Recovered/Not Resolved]
  - Gait inability [Unknown]
  - Constipation [Unknown]
  - Asthenia [Unknown]
  - Hypokalaemia [Recovered/Resolved]
  - Pain [Unknown]
  - Diarrhoea [Unknown]
  - Irritability [Unknown]
  - Status epilepticus [Recovered/Resolved]
  - Decreased appetite [Unknown]
  - Febrile infection [Fatal]
  - Memory impairment [Unknown]
  - Anxiety [Unknown]
  - Malignant neoplasm progression [Not Recovered/Not Resolved]
  - Abdominal pain [Recovered/Resolved]
  - Nausea [Unknown]
  - Dyspnoea [Unknown]

NARRATIVE: CASE EVENT DATE: 20180601
